FAERS Safety Report 10041921 (Version 2)
Quarter: 2014Q2

REPORT INFORMATION
  Report Type: Spontaneous
  Country: IN (occurrence: IN)
  Receive Date: 20140327
  Receipt Date: 20140608
  Transmission Date: 20141212
  Serious: Yes (Other)
  Sender: FDA-Public Use
  Company Number: IN-JNJFOC-20140312469

PATIENT
  Age: 23 Year
  Sex: Male

DRUGS (2)
  1. REGAINE 5% [Suspect]
     Route: 065
  2. REGAINE 5% [Suspect]
     Indication: ALOPECIA
     Dosage: AT NIGHT
     Route: 065

REACTIONS (2)
  - Hair texture abnormal [Recovered/Resolved]
  - Incorrect dose administered [Unknown]
